FAERS Safety Report 10173377 (Version 3)
Quarter: 2014Q2

REPORT INFORMATION
  Report Type: Spontaneous
  Country: JP (occurrence: JP)
  Receive Date: 20140515
  Receipt Date: 20140519
  Transmission Date: 20141212
  Serious: Yes (Other)
  Sender: FDA-Public Use
  Company Number: JP-TEVA-347566ISR

PATIENT
  Age: 41 Year
  Sex: Female

DRUGS (6)
  1. CISPLATIN [Suspect]
     Indication: PHAEOCHROMOCYTOMA
  2. DOCETAXEL [Suspect]
     Indication: PHAEOCHROMOCYTOMA
  3. IFOSFAMIDE [Suspect]
     Indication: PHAEOCHROMOCYTOMA
  4. CYCLOPHOSPHAMIDE [Suspect]
     Indication: PHAEOCHROMOCYTOMA
  5. VINBLASTINE [Suspect]
     Indication: PHAEOCHROMOCYTOMA
  6. DACARBAZINE [Suspect]
     Indication: PHAEOCHROMOCYTOMA

REACTIONS (2)
  - Disease progression [Unknown]
  - Phaeochromocytoma [Unknown]
